FAERS Safety Report 13785224 (Version 2)
Quarter: 2017Q3

REPORT INFORMATION
  Report Type: Spontaneous
  Country: US (occurrence: US)
  Receive Date: 20170724
  Receipt Date: 20170824
  Transmission Date: 20171127
  Serious: Yes (Hospitalization, Other)
  Sender: FDA-Public Use
  Company Number: PHEH2017US022247

PATIENT
  Age: 76 Year
  Sex: Female
  Weight: 59.32 kg

DRUGS (2)
  1. ENTRESTO [Suspect]
     Active Substance: SACUBITRIL\VALSARTAN
     Indication: CONGESTIVE CARDIOMYOPATHY
     Dosage: 50 MG (24/26 MG), BID
     Route: 048
  2. ENTRESTO [Suspect]
     Active Substance: SACUBITRIL\VALSARTAN
     Dosage: 100 MG (49/51 MG), BID
     Route: 048
     Dates: start: 20170701

REACTIONS (8)
  - Troponin I increased [Unknown]
  - Dyspnoea at rest [Unknown]
  - Angina pectoris [Unknown]
  - Blood glucose increased [Unknown]
  - Cardiac failure [Recovering/Resolving]
  - Ventricular hypokinesia [Unknown]
  - Mitral valve incompetence [Unknown]
  - Left atrial enlargement [Unknown]

NARRATIVE: CASE EVENT DATE: 20170711
